FAERS Safety Report 18958944 (Version 1)
Quarter: 2021Q1

REPORT INFORMATION
  Report Type: Spontaneous
  Country: CA (occurrence: CA)
  Receive Date: 20210302
  Receipt Date: 20210302
  Transmission Date: 20210420
  Serious: Yes (Hospitalization)
  Sender: FDA-Public Use
  Company Number: CA-JNJFOC-20210243424

PATIENT
  Age: 72 Year
  Sex: Male

DRUGS (19)
  1. CALMYLIN WITH CODEINE [Concomitant]
  2. GRAVOL [Concomitant]
     Active Substance: DIMENHYDRINATE
  3. LANTUS [Concomitant]
     Active Substance: INSULIN GLARGINE
     Route: 058
  4. CLONAZEPAM. [Concomitant]
     Active Substance: CLONAZEPAM
  5. ROSUVASTATIN. [Concomitant]
     Active Substance: ROSUVASTATIN
  6. INVOKANA [Suspect]
     Active Substance: CANAGLIFLOZIN
     Indication: PRODUCT USED FOR UNKNOWN INDICATION
     Route: 048
  7. BISOPROLOL [Concomitant]
     Active Substance: BISOPROLOL
  8. CLOTRIMADERM [Concomitant]
     Active Substance: CLOTRIMAZOLE
  9. ACETAMINOPHEN. [Concomitant]
     Active Substance: ACETAMINOPHEN
  10. CLOPIDOGREL [Concomitant]
     Active Substance: CLOPIDOGREL BISULFATE
  11. FUROSEMIDE. [Concomitant]
     Active Substance: FUROSEMIDE
  12. METFORMIN [Concomitant]
     Active Substance: METFORMIN HYDROCHLORIDE
  13. PERINDOPRIL [Concomitant]
     Active Substance: PERINDOPRIL
  14. CHLORHEXIDINE GLUCONATE. [Concomitant]
     Active Substance: CHLORHEXIDINE GLUCONATE
  15. HUMALOG [Concomitant]
     Active Substance: INSULIN LISPRO
  16. RISPERIDONE. [Concomitant]
     Active Substance: RISPERIDONE
  17. CLAVULIN [AMOXICILLIN TRIHYDRATE;CLAVULANATE POTASSIUM] [Concomitant]
     Active Substance: AMOXICILLIN\CLAVULANIC ACID
  18. LORAZEPAM. [Concomitant]
     Active Substance: LORAZEPAM
  19. PHENYTOIN. [Concomitant]
     Active Substance: PHENYTOIN

REACTIONS (3)
  - Osteomyelitis [Not Recovered/Not Resolved]
  - Septic shock [Recovered/Resolved]
  - Diabetic foot [Not Recovered/Not Resolved]
